FAERS Safety Report 8531761-8 (Version None)
Quarter: 2012Q3

REPORT INFORMATION
  Report Type: 
  Country: None (occurrence: None)
  Receive Date: 20120723
  Receipt Date: 20120712
  Transmission Date: 20120928
  Serious: Yes (Hospitalization, Other)
  Sender: FDA-Public Use
  Company Number: JP-JNJFOC-20120705065

PATIENT
  Sex: Female
  Weight: 61 kg

DRUGS (15)
  1. CLEMASTINE FUMARATE [Concomitant]
     Indication: PSORIASIS
     Route: 048
     Dates: start: 20100917
  2. TIGASON [Concomitant]
     Indication: PSORIASIS
     Route: 048
     Dates: start: 20100917
  3. BIFIDOBACTERIUM [Concomitant]
     Indication: DIARRHOEA
     Route: 048
     Dates: start: 20091208
  4. OLOPATADINE HCL [Concomitant]
     Indication: PSORIASIS
     Route: 048
     Dates: start: 20100917
  5. REMICADE [Suspect]
     Indication: PUSTULAR PSORIASIS
     Dosage: 2ND INFUSION
     Route: 042
  6. LAXOBERON [Concomitant]
     Indication: CONSTIPATION
     Route: 048
     Dates: start: 20091208
  7. PLAVIX [Concomitant]
     Indication: CARDIAC FAILURE
     Route: 048
     Dates: start: 20091208
  8. REMITCH [Concomitant]
     Indication: URAEMIC PRURITUS
     Route: 048
     Dates: start: 20100917
  9. LANSOPRAZOLE [Concomitant]
     Indication: GASTROOESOPHAGEAL REFLUX DISEASE
     Route: 048
     Dates: start: 20091208
  10. REMICADE [Suspect]
     Route: 042
     Dates: start: 20120419
  11. SULFAMETHOXAZOLE AND TRIMETHOPRIM [Concomitant]
     Indication: ANTIFUNGAL PROPHYLAXIS
     Route: 048
     Dates: start: 20110811
  12. MONILAC [Concomitant]
     Indication: HYPERAMMONAEMIA
     Route: 048
     Dates: start: 20091208
  13. REMICADE [Suspect]
     Route: 042
     Dates: start: 20110726
  14. ASPIRIN [Concomitant]
     Indication: CARDIAC FAILURE
     Route: 048
     Dates: start: 20091208
  15. ITRACONAZOLE [Concomitant]
     Indication: ANTIFUNGAL PROPHYLAXIS
     Route: 048
     Dates: start: 20110915

REACTIONS (1)
  - PNEUMONIA [None]
